FAERS Safety Report 10668776 (Version 6)
Quarter: 2015Q2

REPORT INFORMATION
  Report Type: Spontaneous
  Country: US (occurrence: US)
  Receive Date: 20141222
  Receipt Date: 20150514
  Transmission Date: 20150821
  Serious: Yes (Hospitalization, Other)
  Sender: FDA-Public Use
  Company Number: US-PFIZER INC-2014074607

PATIENT
  Age: 54 Year
  Sex: Female

DRUGS (10)
  1. LYRICA [Suspect]
     Active Substance: PREGABALIN
     Dosage: 150 MG, 3X/DAY
  2. LYRICA [Suspect]
     Active Substance: PREGABALIN
     Indication: NEURALGIA
     Dosage: 900 MG, DAILY
  3. LORTAB [Concomitant]
     Active Substance: ACETAMINOPHEN\HYDROCODONE BITARTRATE
     Indication: NEURALGIA
     Dosage: UNK, 4X/DAY
  4. LYRICA [Suspect]
     Active Substance: PREGABALIN
     Indication: NEUROPATHY PERIPHERAL
     Dosage: UNK, 2X/DAY
  5. MOBIC [Concomitant]
     Active Substance: MELOXICAM
     Dosage: UNK
  6. XANAX [Concomitant]
     Active Substance: ALPRAZOLAM
     Indication: ANXIETY
  7. IBUPROFEN. [Concomitant]
     Active Substance: IBUPROFEN
     Indication: PAIN
     Dosage: 20 MG, UNK
  8. XANAX [Concomitant]
     Active Substance: ALPRAZOLAM
     Indication: INSOMNIA
     Dosage: 0.05 MG, 1X/DAY (AT LEAST 1600 MG A DAY)
  9. HYDROCODONE/APAP 10-325 [Concomitant]
     Dosage: UNK, 4X/DAY
  10. NEURONTIN [Concomitant]
     Active Substance: GABAPENTIN
     Dosage: UNK

REACTIONS (10)
  - Infection [Unknown]
  - Accidental overdose [Unknown]
  - Intervertebral disc protrusion [Not Recovered/Not Resolved]
  - Feeling abnormal [Recovered/Resolved]
  - Nervousness [Unknown]
  - Drug ineffective [Unknown]
  - Urinary tract infection [Unknown]
  - Transient ischaemic attack [Unknown]
  - Suicide attempt [Recovered/Resolved]
  - Crying [Not Recovered/Not Resolved]
